FAERS Safety Report 5786922-8 (Version None)
Quarter: 2008Q2

REPORT INFORMATION
  Report Type: 
  Country: None (occurrence: None)
  Receive Date: 20080625
  Receipt Date: 20080619
  Transmission Date: 20081010
  Serious: Yes (Death, Hospitalization)
  Sender: FDA-Public Use
  Company Number: JP-JNJFOC-20080605166

PATIENT
  Sex: Female

DRUGS (11)
  1. FENTANYL TRANSDERMAL SYSTEM [Suspect]
     Indication: ABDOMINAL PAIN
     Route: 062
  2. FENTANYL TRANSDERMAL SYSTEM [Suspect]
     Indication: PANCREATIC CARCINOMA
     Route: 062
  3. HOKUNALIN [Suspect]
     Route: 062
  4. HOKUNALIN [Suspect]
     Route: 062
  5. HOKUNALIN [Suspect]
     Indication: ASTHMA
     Route: 062
  6. VOLTAREN [Concomitant]
     Indication: PANCREATIC CARCINOMA
     Route: 054
  7. LENDORMIN D [Concomitant]
     Indication: INSOMNIA
     Route: 048
  8. DORMICUM [Concomitant]
     Indication: INSOMNIA
     Route: 041
  9. FAMOTIDINE [Concomitant]
     Indication: PANCREATIC CARCINOMA
     Route: 041
  10. BETAMETHASONE [Concomitant]
     Indication: PANCREATIC CARCINOMA
     Route: 041
  11. ROHYPNOL [Concomitant]
     Indication: INSOMNIA
     Route: 041

REACTIONS (3)
  - DRUG ADMINISTRATION ERROR [None]
  - PANCREATIC CARCINOMA [None]
  - TREMOR [None]
